FAERS Safety Report 17296108 (Version 3)
Quarter: 2020Q1

REPORT INFORMATION
  Report Type: Spontaneous
  Country: US (occurrence: US)
  Receive Date: 20200122
  Receipt Date: 20200130
  Transmission Date: 20200409
  Serious: No
  Sender: FDA-Public Use
  Company Number: US-009507513-2001USA006998

PATIENT
  Sex: Female

DRUGS (3)
  1. ACETAMINOPHEN (+) HYDROCODONE BITARTRATE [Concomitant]
     Active Substance: ACETAMINOPHEN\HYDROCODONE BITARTRATE
     Dosage: UNK
  2. PROVENTIL [Suspect]
     Active Substance: ALBUTEROL
     Dosage: UNK
     Dates: start: 2019
  3. PRINIVIL [Suspect]
     Active Substance: LISINOPRIL
     Dosage: 20/12.5
     Route: 048

REACTIONS (4)
  - Dyspnoea [Recovered/Resolved]
  - Incorrect dose administered [Unknown]
  - Product quality issue [Unknown]
  - Poor quality device used [Unknown]
